FAERS Safety Report 25974169 (Version 2)
Quarter: 2025Q4

REPORT INFORMATION
  Report Type: Report from Study
  Country: US (occurrence: US)
  Receive Date: 20251029
  Receipt Date: 20251130
  Transmission Date: 20260118
  Serious: Yes (Other)
  Sender: ACADIA PHARMACEUTICALS
  Company Number: US-ACADIA PHARMACEUTICALS INC.-ACA-2025-TRF-011535

PATIENT
  Sex: Female

DRUGS (1)
  1. DAYBUE [Suspect]
     Active Substance: TROFINETIDE
     Indication: Rett syndrome
     Dosage: 30ML IN THE MORNING AND 40ML IN THE EVENING
     Route: 048

REACTIONS (5)
  - Syncope [Not Recovered/Not Resolved]
  - Fall [Not Recovered/Not Resolved]
  - Tooth injury [Not Recovered/Not Resolved]
  - Pallor [Not Recovered/Not Resolved]
  - Incorrect dose administered [Not Recovered/Not Resolved]
